FAERS Safety Report 7377365-4 (Version None)
Quarter: 2011Q1

REPORT INFORMATION
  Report Type: 
  Country: None (occurrence: None)
  Receive Date: 20110328
  Receipt Date: 20110323
  Transmission Date: 20110831
  Serious: No
  Sender: FDA-Public Use
  Company Number: US-PFIZER INC-2011064929

PATIENT
  Sex: Male
  Weight: 79.365 kg

DRUGS (4)
  1. EFFEXOR XR [Concomitant]
     Indication: ANXIETY
     Dosage: UNK
  2. LYRICA [Suspect]
     Indication: FIBROMYALGIA
     Dosage: 75 MG, 1X/DAY
     Route: 048
     Dates: start: 20091111, end: 20091113
  3. LORAZEPAM [Concomitant]
     Indication: SLEEP DISORDER
     Dosage: UNK
  4. SOMA [Concomitant]
     Indication: FIBROMYALGIA
     Dosage: UNK

REACTIONS (1)
  - ABNORMAL DREAMS [None]
